FAERS Safety Report 5533990-4 (Version None)
Quarter: 2007Q4

REPORT INFORMATION
  Report Type: 
  Country: None (occurrence: None)
  Receive Date: 20071130
  Receipt Date: 20071103
  Transmission Date: 20080405
  Serious: Yes (Hospitalization)
  Sender: FDA-Public Use
  Company Number: 002#2#2007-00335

PATIENT
  Sex: Male

DRUGS (1)
  1. NEUPRO [Suspect]
     Indication: PARKINSON'S DISEASE
     Dosage: MG/24H, 1 IN 1 D, TRANSDERMAL
     Route: 062

REACTIONS (3)
  - DELUSION [None]
  - HALLUCINATION [None]
  - ILL-DEFINED DISORDER [None]
